FAERS Safety Report 7229687-5 (Version None)
Quarter: 2011Q1

REPORT INFORMATION
  Report Type: 
  Country: None (occurrence: None)
  Receive Date: 20110117
  Receipt Date: 20110107
  Transmission Date: 20110831
  Serious: Yes (Hospitalization)
  Sender: FDA-Public Use
  Company Number: PHHO2010US19583

PATIENT
  Sex: Female
  Weight: 29.025 kg

DRUGS (14)
  1. MIRALAX [Concomitant]
  2. OMEPRAZOLE [Concomitant]
  3. AFINITOR [Suspect]
     Indication: COLORECTAL CANCER METASTATIC
     Dosage: 10 MG, QD
     Route: 048
     Dates: start: 20100903, end: 20101222
  4. AMLODIPINE [Concomitant]
  5. HYDROCHLOROTHIAZIDE [Concomitant]
  6. TRAMADOL [Concomitant]
  7. VENTOLIN [Concomitant]
  8. DILAUDID [Concomitant]
  9. COUMADIN [Concomitant]
  10. POTASSIUM CHLORIDE [Concomitant]
  11. COMPAZINE [Concomitant]
  12. FERROUS SULFATE [Concomitant]
  13. K-PHOS NEUTRAL [Concomitant]
  14. MULTI-VITAMINS [Concomitant]

REACTIONS (5)
  - DYSPNOEA [None]
  - TUMOUR RUPTURE [None]
  - HYDROPNEUMOTHORAX [None]
  - TACHYCARDIA [None]
  - CHEST TUBE INSERTION [None]
